FAERS Safety Report 9960063 (Version 2)
Quarter: 2014Q1

REPORT INFORMATION
  Report Type: Spontaneous
  Country: PR (occurrence: PR)
  Receive Date: 20140305
  Receipt Date: 20140305
  Transmission Date: 20141002
  Serious: No
  Sender: FDA-Public Use
  Company Number: PR-ABBVIE-12P-131-1015055-00

PATIENT
  Sex: Male

DRUGS (5)
  1. HUMIRA [Suspect]
     Indication: RHEUMATOID ARTHRITIS
     Route: 058
     Dates: start: 2011, end: 2012
  2. HUMIRA [Suspect]
     Route: 058
     Dates: start: 201212
  3. AMARYL [Concomitant]
     Indication: DIABETES MELLITUS
     Route: 048
  4. LOTREL [Concomitant]
     Indication: HYPERTENSION
     Route: 048
  5. ULTRACET [Concomitant]
     Indication: PAIN
     Route: 048

REACTIONS (1)
  - Nasopharyngitis [Recovered/Resolved]
